FAERS Safety Report 13834657 (Version 1)
Quarter: 2017Q3

REPORT INFORMATION
  Report Type: Spontaneous
  Country: CA (occurrence: CA)
  Receive Date: 20170804
  Receipt Date: 20170804
  Transmission Date: 20171127
  Serious: Yes (Other)
  Sender: FDA-Public Use
  Company Number: CA-ROCHE-1970673

PATIENT
  Age: 74 Year
  Sex: Female

DRUGS (13)
  1. NOVORAPID [Concomitant]
     Active Substance: INSULIN ASPART
  2. RAMIPRIL. [Concomitant]
     Active Substance: RAMIPRIL
  3. RABEPRAZOLE [Concomitant]
     Active Substance: RABEPRAZOLE
  4. RITUXAN [Suspect]
     Active Substance: RITUXIMAB
     Indication: VASCULITIS
     Route: 065
  5. AZATHIOPRINE. [Concomitant]
     Active Substance: AZATHIOPRINE
  6. TRAJENTA [Concomitant]
     Active Substance: LINAGLIPTIN
  7. OYSTER SHELL [Concomitant]
     Active Substance: OSTREA EDULIS SHELL
  8. NOVOMIX [Concomitant]
     Active Substance: INSULIN ASPART
  9. PREDNISONE. [Concomitant]
     Active Substance: PREDNISONE
  10. SULFAMETHOXAZOLE [Concomitant]
     Active Substance: SULFAMETHOXAZOLE
  11. ATENOLOL. [Concomitant]
     Active Substance: ATENOLOL
  12. AMLODIPINE [Concomitant]
     Active Substance: AMLODIPINE BESYLATE
  13. ATORVASTATIN [Concomitant]
     Active Substance: ATORVASTATIN

REACTIONS (11)
  - Blood creatinine increased [Unknown]
  - Atelectasis [Not Recovered/Not Resolved]
  - Antineutrophil cytoplasmic antibody increased [Unknown]
  - Lymphocyte count decreased [Unknown]
  - Glomerular filtration rate decreased [Unknown]
  - Vasculitis [Not Recovered/Not Resolved]
  - Haemoglobin decreased [Unknown]
  - Blood potassium increased [Unknown]
  - Arteriosclerosis coronary artery [Not Recovered/Not Resolved]
  - Bronchial carcinoma [Not Recovered/Not Resolved]
  - Eosinophil count decreased [Unknown]

NARRATIVE: CASE EVENT DATE: 20170524
